FAERS Safety Report 9783047 (Version 1)
Quarter: 2013Q4

REPORT INFORMATION
  Report Type: Spontaneous
  Country: US (occurrence: None)
  Receive Date: 20131223
  Receipt Date: 20131223
  Transmission Date: 20140711
  Serious: Yes (Hospitalization)
  Sender: FDA-Public Use
  Company Number: EUS-2011-00795

PATIENT
  Age: 16 Year
  Sex: Male

DRUGS (2)
  1. ERWINASE (ASPARAGINASE) [Suspect]
     Indication: ACUTE LYMPHOCYTIC LEUKAEMIA
     Dosage: (42250 IU), INTRAMUSCULAR
     Dates: start: 20110712
  2. DEXAMETHASONE (DEXAMETHASONE) [Concomitant]

REACTIONS (8)
  - Anaphylactic reaction [None]
  - Flushing [None]
  - Throat tightness [None]
  - Sneezing [None]
  - Chest discomfort [None]
  - Urticaria [None]
  - Hypersensitivity [None]
  - Neurotoxicity [None]
